FAERS Safety Report 19403997 (Version 3)
Quarter: 2022Q2

REPORT INFORMATION
  Report Type: Other
  Country: CA (occurrence: CA)
  Receive Date: 20210610
  Receipt Date: 20220629
  Transmission Date: 20220720
  Serious: Yes (Hospitalization)
  Sender: FDA-Public Use
  Company Number: CA-CELLTRION INC.-2021CA007623

PATIENT

DRUGS (8)
  1. RITUXIMAB [Suspect]
     Active Substance: RITUXIMAB
     Indication: Granulomatosis with polyangiitis
     Dosage: 1000.0 MILLIGRAM, 1 EVERY 15 DAYS
     Route: 042
  2. RITUXIMAB [Suspect]
     Active Substance: RITUXIMAB
     Indication: Vasculitis
     Dosage: 500.0 MILLIGRAM
     Route: 042
  3. ACETAMINOPHEN [Concomitant]
     Active Substance: ACETAMINOPHEN
     Indication: Premedication
     Dosage: 650 MILLIGRAM
     Route: 048
  4. ASPIRIN [Concomitant]
     Active Substance: ASPIRIN
     Route: 065
  5. BENADRYL [Concomitant]
     Active Substance: DIPHENHYDRAMINE HYDROCHLORIDE
     Indication: Premedication
     Dosage: 50.0 MILLIGRAM
     Route: 048
  6. IVABRADINE [Concomitant]
     Active Substance: IVABRADINE
  7. METHYLPREDNISOLONE SODIUM SUCCINATE [Concomitant]
     Active Substance: METHYLPREDNISOLONE SODIUM SUCCINATE
     Indication: Premedication
     Dosage: 100.0 MILLIGRAM
     Route: 042
  8. PREDNISONE [Concomitant]
     Active Substance: PREDNISONE

REACTIONS (7)
  - Blood pressure diastolic decreased [Unknown]
  - Blood pressure systolic abnormal [Unknown]
  - Heart rate decreased [Unknown]
  - Blood pressure systolic increased [Unknown]
  - Blood pressure increased [Unknown]
  - Overdose [Unknown]
  - Off label use [Unknown]
